FAERS Safety Report 17931435 (Version 2)
Quarter: 2020Q2

REPORT INFORMATION
  Report Type: Spontaneous
  Country: FR (occurrence: FR)
  Receive Date: 20200623
  Receipt Date: 20200625
  Transmission Date: 20200714
  Serious: Yes (Hospitalization)
  Sender: FDA-Public Use
  Company Number: NVSC2020FR174557

PATIENT
  Sex: Male

DRUGS (2)
  1. MYCOPHENOLATE MOFETIL. [Suspect]
     Active Substance: MYCOPHENOLATE MOFETIL
     Indication: RENAL TRANSPLANT
     Dosage: 750 MILLIGRAM, BID
     Route: 065
     Dates: end: 20200308
  2. BELATACEPT [Suspect]
     Active Substance: BELATACEPT
     Indication: RENAL TRANSPLANT
     Dosage: 345 MILLIGRAM, EVERY 28 DAYS
     Route: 065
     Dates: start: 201706

REACTIONS (3)
  - Intentional product use issue [Unknown]
  - Off label use [Unknown]
  - Coronavirus infection [Unknown]
